FAERS Safety Report 5882743-6 (Version None)
Quarter: 2008Q3

REPORT INFORMATION
  Report Type: 
  Country: None (occurrence: None)
  Receive Date: 20080913
  Receipt Date: 20080812
  Transmission Date: 20090109
  Serious: No
  Sender: FDA-Public Use
  Company Number: US-ABBOTT-08P-163-0471054-00

PATIENT
  Sex: Female
  Weight: 59.02 kg

DRUGS (6)
  1. HUMIRA [Suspect]
     Indication: PSORIATIC ARTHROPATHY
     Route: 050
     Dates: start: 20080201
  2. METHOTREXATE [Concomitant]
     Indication: PSORIATIC ARTHROPATHY
     Route: 048
     Dates: start: 20070101
  3. NAPROXEN SODIUM [Concomitant]
     Indication: PSORIATIC ARTHROPATHY
     Route: 048
     Dates: start: 20080101
  4. DULOXETINE HYDROCHLORIDE [Concomitant]
     Indication: NEURALGIA
     Route: 048
     Dates: start: 20060101
  5. CLONAZEPAM [Concomitant]
     Indication: PAIN MANAGEMENT
     Route: 048
     Dates: start: 20070101
  6. FOLIC ACID [Concomitant]
     Indication: VITAMIN SUPPLEMENTATION
     Route: 048
     Dates: start: 20070101

REACTIONS (1)
  - PSORIATIC ARTHROPATHY [None]
